FAERS Safety Report 5740767-3 (Version None)
Quarter: 2008Q2

REPORT INFORMATION
  Report Type: 
  Country: None (occurrence: None)
  Receive Date: 20080515
  Receipt Date: 20080225
  Transmission Date: 20081010
  Serious: No
  Sender: FDA-Public Use
  Company Number: WAES 0801USA00104

PATIENT
  Age: 56 Year
  Sex: Female
  Weight: 50.3493 kg

DRUGS (7)
  1. TAB ISENTRESS [Suspect]
     Indication: HIV INFECTION
     Dosage: 400 MG/BID/PO
     Route: 048
     Dates: start: 20071114
  2. KEPPRA [Concomitant]
  3. LEXIVA [Concomitant]
  4. LEXIVA [Concomitant]
  5. NORVIR [Concomitant]
  6. TRIZIVIR [Concomitant]
  7. VIREAD [Concomitant]

REACTIONS (1)
  - ALOPECIA [None]
